FAERS Safety Report 8289875-6 (Version None)
Quarter: 2012Q2

REPORT INFORMATION
  Report Type: 
  Country: None (occurrence: None)
  Receive Date: 20120417
  Receipt Date: 20120413
  Transmission Date: 20120825
  Serious: Yes (Other)
  Sender: FDA-Public Use
  Company Number: US-PFIZER INC-2012092779

PATIENT
  Sex: Male

DRUGS (1)
  1. LYRICA [Suspect]
     Indication: MUSCLE SPASMS
     Dosage: 50 MG, 3X/DAY
     Dates: start: 20120319, end: 20120329

REACTIONS (3)
  - BURNING SENSATION [None]
  - VISION BLURRED [None]
  - LACRIMATION INCREASED [None]
